FAERS Safety Report 5406480-7 (Version None)
Quarter: 2007Q3

REPORT INFORMATION
  Report Type: 
  Country: None (occurrence: None)
  Receive Date: 20070806
  Receipt Date: 20070726
  Transmission Date: 20080115
  Serious: Yes (Disabling)
  Sender: FDA-Public Use
  Company Number: JP-ELI_LILLY_AND_COMPANY-JP200707006667

PATIENT
  Age: 37 Year
  Sex: Male
  Weight: 76.9 kg

DRUGS (7)
  1. PEMETREXED [Suspect]
     Indication: PLEURAL MESOTHELIOMA MALIGNANT RECURRENT
     Dosage: 960 MG, OTHER
     Route: 042
     Dates: start: 20070313, end: 20070515
  2. CISPLATIN [Suspect]
     Indication: PLEURAL MESOTHELIOMA MALIGNANT RECURRENT
     Dosage: 144 MG, OTHER
     Route: 042
     Dates: start: 20070313, end: 20070515
  3. PANVITAN [Concomitant]
     Dosage: 0.5 MG, DAILY (1/D)
     Route: 048
     Dates: start: 20070215, end: 20070625
  4. METHYCOBAL [Concomitant]
     Dosage: 1 MG, UNK
     Route: 030
     Dates: start: 20070215
  5. ONON [Concomitant]
     Indication: RHINITIS ALLERGIC
     Dosage: 450 MG, DAILY (1/D)
     Route: 048
  6. TEGRETOL [Concomitant]
     Indication: EPILEPSY
     Dosage: 400 MG, DAILY (1/D)
     Route: 048
  7. KYTRIL [Concomitant]
     Indication: PROPHYLAXIS

REACTIONS (1)
  - DEAFNESS NEUROSENSORY [None]
